FAERS Safety Report 6376097-9 (Version None)
Quarter: 2009Q3

REPORT INFORMATION
  Report Type: 
  Country: None (occurrence: None)
  Receive Date: 20090921
  Receipt Date: 20090914
  Transmission Date: 20100115
  Serious: Yes (Hospitalization)
  Sender: FDA-Public Use
  Company Number: 2008SP021967

PATIENT
  Age: 39 Year
  Sex: Male
  Weight: 64 kg

DRUGS (24)
  1. TEMODAL [Suspect]
     Indication: GLIOBLASTOMA MULTIFORME
     Dosage: 140 MG; QD; PO, 280 MG; ; PO, 260 MG; ; PO
     Route: 048
     Dates: start: 20070903, end: 20071015
  2. TEMODAL [Suspect]
     Indication: GLIOBLASTOMA MULTIFORME
     Dosage: 140 MG; QD; PO, 280 MG; ; PO, 260 MG; ; PO
     Route: 048
     Dates: start: 20071112
  3. TEMODAL [Suspect]
     Indication: GLIOBLASTOMA MULTIFORME
     Dosage: 140 MG; QD; PO, 280 MG; ; PO, 260 MG; ; PO
     Route: 048
     Dates: start: 20071212
  4. TEMODAL [Suspect]
     Indication: GLIOBLASTOMA MULTIFORME
     Dosage: 140 MG; QD; PO, 280 MG; ; PO, 260 MG; ; PO
     Route: 048
     Dates: start: 20080109
  5. TEMODAL [Suspect]
     Indication: GLIOBLASTOMA MULTIFORME
     Dosage: 140 MG; QD; PO, 280 MG; ; PO, 260 MG; ; PO
     Route: 048
     Dates: start: 20080206
  6. TEMODAL [Suspect]
     Indication: GLIOBLASTOMA MULTIFORME
     Dosage: 140 MG; QD; PO, 280 MG; ; PO, 260 MG; ; PO
     Route: 048
     Dates: start: 20080305
  7. TEMODAL [Suspect]
     Indication: GLIOBLASTOMA MULTIFORME
     Dosage: 140 MG; QD; PO, 280 MG; ; PO, 260 MG; ; PO
     Route: 048
     Dates: start: 20080402
  8. TEMODAL [Suspect]
     Indication: GLIOBLASTOMA MULTIFORME
     Dosage: 140 MG; QD; PO, 280 MG; ; PO, 260 MG; ; PO
     Route: 048
     Dates: start: 20080430
  9. TEMODAL [Suspect]
     Indication: GLIOBLASTOMA MULTIFORME
     Dosage: 140 MG; QD; PO, 280 MG; ; PO, 260 MG; ; PO
     Route: 048
     Dates: start: 20080528
  10. TEMODAL [Suspect]
     Indication: GLIOBLASTOMA MULTIFORME
     Dosage: 140 MG; QD; PO, 280 MG; ; PO, 260 MG; ; PO
     Route: 048
     Dates: start: 20080625
  11. TEMODAL [Suspect]
     Indication: GLIOBLASTOMA MULTIFORME
     Dosage: 140 MG; QD; PO, 280 MG; ; PO, 260 MG; ; PO
     Route: 048
     Dates: start: 20080725
  12. TEMODAL [Suspect]
     Indication: GLIOBLASTOMA MULTIFORME
     Dosage: 140 MG; QD; PO, 280 MG; ; PO, 260 MG; ; PO
     Route: 048
     Dates: start: 20081121
  13. TEMODAL [Suspect]
     Indication: GLIOBLASTOMA MULTIFORME
     Dosage: 140 MG; QD; PO, 280 MG; ; PO, 260 MG; ; PO
     Route: 048
     Dates: start: 20081222
  14. TEMODAL [Suspect]
     Indication: GLIOBLASTOMA MULTIFORME
     Dosage: 140 MG; QD; PO, 280 MG; ; PO, 260 MG; ; PO
     Route: 048
     Dates: start: 20090126
  15. TEMODAL [Suspect]
     Indication: GLIOBLASTOMA MULTIFORME
     Dosage: 140 MG; QD; PO, 280 MG; ; PO, 260 MG; ; PO
     Route: 048
     Dates: start: 20090223
  16. TEMODAL [Suspect]
     Indication: GLIOBLASTOMA MULTIFORME
     Dosage: 140 MG; QD; PO, 280 MG; ; PO, 260 MG; ; PO
     Route: 048
     Dates: start: 20090327
  17. TEMODAL [Suspect]
     Indication: GLIOBLASTOMA MULTIFORME
     Dosage: 140 MG; QD; PO, 280 MG; ; PO, 260 MG; ; PO
     Route: 048
     Dates: start: 20090501
  18. TEMODAL [Suspect]
     Indication: GLIOBLASTOMA MULTIFORME
     Dosage: 140 MG; QD; PO, 280 MG; ; PO, 260 MG; ; PO
     Route: 048
     Dates: start: 20090529
  19. TEMODAL [Suspect]
     Indication: GLIOBLASTOMA MULTIFORME
     Dosage: 140 MG; QD; PO, 280 MG; ; PO, 260 MG; ; PO
     Route: 048
     Dates: start: 20090629
  20. TEMODAL [Suspect]
     Indication: GLIOBLASTOMA MULTIFORME
     Dosage: 140 MG; QD; PO, 280 MG; ; PO, 260 MG; ; PO
     Route: 048
     Dates: start: 20090725
  21. TEMODAL [Suspect]
     Indication: GLIOBLASTOMA MULTIFORME
     Dosage: 140 MG; QD; PO, 280 MG; ; PO, 260 MG; ; PO
     Route: 048
     Dates: start: 20090824
  22. DEPAKENE [Concomitant]
  23. KYTRIL [Concomitant]
  24. BAKTAR [Concomitant]

REACTIONS (2)
  - DIVERTICULUM INTESTINAL [None]
  - GASTRIC CANCER [None]
